FAERS Safety Report 12754007 (Version 2)
Quarter: 2016Q3

REPORT INFORMATION
  Report Type: Report from Study
  Country: FR (occurrence: FR)
  Receive Date: 20160916
  Receipt Date: 20160916
  Transmission Date: 20161109
  Serious: Yes (Death, Hospitalization, Disabling)
  Sender: FDA-Public Use
  Company Number: PHHY2016FR126547

PATIENT
  Age: 72 Year
  Sex: Female
  Weight: 84 kg

DRUGS (2)
  1. GENERIC CICLOSPORIN [Suspect]
     Active Substance: CYCLOSPORINE
     Indication: APLASTIC ANAEMIA
     Dosage: UNK UNK, BID
     Route: 048
     Dates: start: 20151211
  2. ATGAM [Suspect]
     Active Substance: EQUINE THYMOCYTE IMMUNE GLOBULIN
     Indication: APLASTIC ANAEMIA
     Dosage: UNK UNK, QD
     Route: 042
     Dates: start: 20151211, end: 20151215

REACTIONS (8)
  - Arthritis bacterial [Fatal]
  - Diarrhoea [Unknown]
  - Decreased appetite [Unknown]
  - General physical health deterioration [Unknown]
  - Cachexia [Fatal]
  - Proctitis [Unknown]
  - Escherichia infection [Fatal]
  - Product use issue [Unknown]

NARRATIVE: CASE EVENT DATE: 20160604
